FAERS Safety Report 9290098 (Version 1)
Quarter: 2013Q2

REPORT INFORMATION
  Report Type: Report from Study
  Country: US (occurrence: US)
  Receive Date: 20130515
  Receipt Date: 20130515
  Transmission Date: 20140414
  Serious: Yes (Death)
  Sender: FDA-Public Use
  Company Number: PHEH2013US010641

PATIENT
  Age: 82 Year
  Sex: Male

DRUGS (7)
  1. TASIGNA [Suspect]
     Indication: CHRONIC MYELOID LEUKAEMIA
     Dosage: 300 MG, BID
     Route: 048
     Dates: start: 20120427, end: 20130510
  2. LISINOPRIL [Concomitant]
  3. SIMVASTATIN [Concomitant]
  4. DIGOXIN [Concomitant]
  5. ROPINIROLE [Concomitant]
  6. ALLOPURINOL [Concomitant]
  7. TYLENOL [Concomitant]

REACTIONS (1)
  - Death [Fatal]
